FAERS Safety Report 9146662 (Version 1)
Quarter: 2013Q1

REPORT INFORMATION
  Report Type: Report from Study
  Country: BR (occurrence: BR)
  Receive Date: 20130307
  Receipt Date: 20130307
  Transmission Date: 20140127
  Serious: Yes (Other)
  Sender: FDA-Public Use
  Company Number: BR-BAYER-2013-028898

PATIENT
  Age: 59 Year
  Sex: Female

DRUGS (6)
  1. INTERFERON BETA - 1B [Suspect]
     Indication: SECONDARY PROGRESSIVE MULTIPLE SCLEROSIS
     Dosage: 1 ML, QOD
     Route: 058
     Dates: start: 2000, end: 201212
  2. SIMVASTATIN [Suspect]
     Indication: BLOOD CHOLESTEROL INCREASED
     Dosage: 40 MG, QD
     Route: 048
     Dates: end: 2013
  3. ATENOLOL [Concomitant]
     Indication: HYPERTENSION
     Dosage: 1 DF, QD
     Route: 048
  4. ENALAPRIL [Concomitant]
     Indication: HYPERTENSION
     Dosage: 10 MG, QD
     Route: 048
  5. CLORANA [Concomitant]
     Indication: HYPERTENSION
     Dosage: 1 DF, QD
     Route: 048
     Dates: end: 2012
  6. ASA [Concomitant]
     Indication: ISCHAEMIC HEART DISEASE PROPHYLAXIS
     Dosage: 1 DF, QD
     Route: 048
     Dates: start: 2011, end: 2012

REACTIONS (6)
  - Paralysis [Recovered/Resolved]
  - Mobility decreased [Recovered/Resolved]
  - Dysstasia [Recovered/Resolved]
  - Feeling abnormal [Recovered/Resolved]
  - Abdominal pain upper [Unknown]
  - Blood cholesterol increased [Not Recovered/Not Resolved]
